FAERS Safety Report 7285680-8 (Version None)
Quarter: 2011Q1

REPORT INFORMATION
  Report Type: 
  Country: None (occurrence: None)
  Receive Date: 20110210
  Receipt Date: 20110204
  Transmission Date: 20110831
  Serious: Yes (Other)
  Sender: FDA-Public Use
  Company Number: B0698012A

PATIENT
  Sex: Female

DRUGS (5)
  1. GELUPRANE [Concomitant]
     Dosage: 500MG UNKNOWN
     Route: 048
  2. ZYBAN [Suspect]
     Dosage: 150MG TWICE PER DAY
     Route: 048
     Dates: start: 20101013, end: 20101117
  3. ZOPICLONE [Concomitant]
     Dosage: 1MG PER DAY
     Route: 048
     Dates: start: 20101109
  4. SIMVASTATIN [Concomitant]
     Dosage: 20MG PER DAY
     Route: 048
  5. NOCTAMIDE [Concomitant]
     Dosage: 1MG PER DAY
     Route: 048
     Dates: end: 20101109

REACTIONS (11)
  - DEPRESSION [None]
  - CONSTIPATION [None]
  - DISORIENTATION [None]
  - DEPERSONALISATION [None]
  - ANXIETY [None]
  - SENSE OF OPPRESSION [None]
  - INSOMNIA [None]
  - NAUSEA [None]
  - DRY MOUTH [None]
  - PAIN IN EXTREMITY [None]
  - DECREASED APPETITE [None]
